FAERS Safety Report 16869387 (Version 1)
Quarter: 2019Q3

REPORT INFORMATION
  Report Type: Spontaneous
  Country: CN (occurrence: CN)
  Receive Date: 20190930
  Receipt Date: 20190930
  Transmission Date: 20191005
  Serious: Yes (Disabling)
  Sender: FDA-Public Use
  Company Number: CN-009507513-1909CHN014591

PATIENT
  Age: 54 Year
  Sex: Male
  Weight: 61 kg

DRUGS (4)
  1. DUO XI LIN ZHI XIAN DAN JIAN ZHU SHE YE [Concomitant]
     Indication: HEPATIC FUNCTION ABNORMAL
     Dosage: QD
     Route: 042
     Dates: start: 20190825, end: 20190830
  2. DIAMMONIUM GLYCYRRHIZINATE [Concomitant]
     Active Substance: HERBALS\DIAMMONIUM GLYCYRRHIZINATE
     Indication: HEPATIC FUNCTION ABNORMAL
     Dosage: 150 MILLIGRAM, TID
     Route: 048
     Dates: start: 20190823, end: 20190917
  3. AMLODIPINE BESYLATE. [Suspect]
     Active Substance: AMLODIPINE BESYLATE
     Indication: HYPERTENSION
     Dosage: 5 MILLIGRAM, QD
     Route: 048
     Dates: start: 20190823, end: 20190917
  4. JANUVIA [Suspect]
     Active Substance: SITAGLIPTIN PHOSPHATE
     Indication: HYPERGLYCAEMIA
     Dosage: 100 MILLIGRAM, QD
     Route: 048
     Dates: start: 20190823, end: 20190830

REACTIONS (1)
  - Hepatic function abnormal [Recovering/Resolving]

NARRATIVE: CASE EVENT DATE: 20190828
